FAERS Safety Report 5104484-5 (Version None)
Quarter: 2006Q3

REPORT INFORMATION
  Report Type: 
  Country: None (occurrence: None)
  Receive Date: 20060908
  Receipt Date: 20060908
  Transmission Date: 20061208
  Serious: Yes (Hospitalization)
  Sender: FDA-Public Use
  Company Number: None

PATIENT
  Age: 89 Year
  Sex: Male
  Weight: 59.9 kg

DRUGS (1)
  1. ATENOLOL [Suspect]
     Indication: HYPERTENSION
     Dosage: 25 MG QD PO
     Route: 048

REACTIONS (5)
  - BRADYCARDIA [None]
  - DEHYDRATION [None]
  - HYPERSENSITIVITY [None]
  - HYPOTENSION [None]
  - SYNCOPE [None]
